FAERS Safety Report 18071568 (Version 1)
Quarter: 2020Q3

REPORT INFORMATION
  Report Type: Spontaneous
  Country: US (occurrence: US)
  Receive Date: 20200724
  Receipt Date: 20200724
  Transmission Date: 20201103
  Serious: No
  Sender: FDA-Public Use
  Company Number: None

PATIENT
  Age: 11 Year
  Sex: Female
  Weight: 42.75 kg

DRUGS (22)
  1. MULTIVITAMIN [Concomitant]
     Active Substance: VITAMINS
  2. DESMOPRESSIN 4MCG/ML [Concomitant]
  3. MELATONIN 3MG [Concomitant]
  4. ZOFRAN ODT 4MG [Concomitant]
  5. TAMSULOSIN 0.4MG [Concomitant]
     Active Substance: TAMSULOSIN
  6. DULCOLAX 10MG [Concomitant]
  7. COLACE 50MG [Concomitant]
  8. ZYRTEC [Concomitant]
     Active Substance: CETIRIZINE HYDROCHLORIDE
  9. PEDIA?LAX 1GM [Concomitant]
  10. CORTEF 5MG [Concomitant]
  11. CHLORHEXIDINE GLUCONATE 0.12% [Concomitant]
     Active Substance: CHLORHEXIDINE GLUCONATE
  12. DIASTAT ACUDIAL 10MG [Concomitant]
  13. LEVOTHYROXINE 25MCG [Concomitant]
     Active Substance: LEVOTHYROXINE
  14. RANITIDINE 75MG/5ML [Concomitant]
  15. TYLENOL [Concomitant]
     Active Substance: ACETAMINOPHEN
  16. MEKTOVI [Suspect]
     Active Substance: BINIMETINIB
     Indication: BRAIN NEOPLASM MALIGNANT
     Route: 048
     Dates: start: 20200406
  17. VITAMIN D3 [Concomitant]
     Active Substance: CHOLECALCIFEROL
  18. LACTULOSE 10GM/15ML [Concomitant]
  19. MIRALAX [Concomitant]
     Active Substance: POLYETHYLENE GLYCOL 3350
  20. LITTLE NOSES SALINE [Concomitant]
  21. KEPPRA [Concomitant]
     Active Substance: LEVETIRACETAM
  22. SENNA [Concomitant]
     Active Substance: SENNA LEAF\SENNOSIDES\SENNOSIDES A AND B

REACTIONS (1)
  - Alopecia [None]

NARRATIVE: CASE EVENT DATE: 20200724
